FAERS Safety Report 8067163-0 (Version None)
Quarter: 2012Q1

REPORT INFORMATION
  Report Type: 
  Country: None (occurrence: None)
  Receive Date: 20120124
  Receipt Date: 20120120
  Transmission Date: 20120608
  Serious: Yes (Death, Hospitalization)
  Sender: FDA-Public Use
  Company Number: US-GLAXOSMITHKLINE-A0886816A

PATIENT
  Age: 49 Year
  Sex: Male

DRUGS (1)
  1. AVANDIA [Suspect]
     Indication: DIABETES MELLITUS
     Dosage: 8MG PER DAY
     Route: 048
     Dates: start: 20030930, end: 20050219

REACTIONS (8)
  - HYPOXIC-ISCHAEMIC ENCEPHALOPATHY [None]
  - ANGINA PECTORIS [None]
  - CHEST PAIN [None]
  - VENTRICULAR FIBRILLATION [None]
  - VENTRICULAR TACHYCARDIA [None]
  - CEREBROVASCULAR ACCIDENT [None]
  - CARDIAC OPERATION [None]
  - CARDIO-RESPIRATORY ARREST [None]
